FAERS Safety Report 24091323 (Version 1)
Quarter: 2024Q3

REPORT INFORMATION
  Report Type: Spontaneous
  Country: GB (occurrence: GB)
  Receive Date: 20240715
  Receipt Date: 20240715
  Transmission Date: 20241017
  Serious: Yes (Other)
  Sender: GUERBET
  Company Number: None

PATIENT
  Age: 45 Year
  Sex: Female

DRUGS (1)
  1. OPTIRAY [Suspect]
     Active Substance: IOVERSOL
     Indication: Computerised tomogram
     Route: 042
     Dates: start: 20240517, end: 20240517

REACTIONS (4)
  - Eye swelling [Recovering/Resolving]
  - Blood pressure diastolic decreased [Unknown]
  - Sneezing [Recovered/Resolved]
  - Eye pruritus [Recovering/Resolving]

NARRATIVE: CASE EVENT DATE: 20240517
